FAERS Safety Report 4682293-9 (Version None)
Quarter: 2005Q2

REPORT INFORMATION
  Report Type: 
  Country: None (occurrence: None)
  Receive Date: 20050531
  Receipt Date: 20050211
  Transmission Date: 20051028
  Serious: No
  Sender: FDA-Public Use
  Company Number: 2005BI003181

PATIENT
  Age: 77 Year
  Sex: Female
  Weight: 69.4003 kg

DRUGS (11)
  1. AMEVIVE [Suspect]
     Indication: PSORIASIS
     Dosage: 15 MG; QW; IM
     Route: 030
     Dates: start: 20040802
  2. HUMULIN N [Concomitant]
  3. FOSAMAX [Concomitant]
  4. AVAPRO [Concomitant]
  5. PROCARDIA [Concomitant]
  6. GLUCOPHAGE [Concomitant]
  7. METHOTREXATE [Concomitant]
  8. EFFEXOR [Concomitant]
  9. DDAVP [Concomitant]
  10. CELEBREX [Concomitant]
  11. ZOCOR [Concomitant]

REACTIONS (2)
  - CD4 LYMPHOCYTES DECREASED [None]
  - URINARY TRACT INFECTION [None]
